FAERS Safety Report 22143632 (Version 1)
Quarter: 2023Q1

REPORT INFORMATION
  Report Type: Spontaneous
  Country: JP (occurrence: JP)
  Receive Date: 20230327
  Receipt Date: 20230327
  Transmission Date: 20230417
  Serious: Yes (Hospitalization)
  Sender: FDA-Public Use
  Company Number: JP-MSD-M2023-11728

PATIENT
  Sex: Female

DRUGS (1)
  1. KEYTRUDA [Suspect]
     Active Substance: PEMBROLIZUMAB
     Dosage: 200 MILLIGRAM, Q3W
     Route: 041
     Dates: start: 202206

REACTIONS (5)
  - Physical deconditioning [Unknown]
  - Blood glucose increased [Unknown]
  - Thirst [Unknown]
  - Nausea [Unknown]
  - Somnolence [Unknown]

NARRATIVE: CASE EVENT DATE: 20230301
